FAERS Safety Report 16993894 (Version 1)
Quarter: 2019Q4

REPORT INFORMATION
  Report Type: Spontaneous
  Country: US (occurrence: US)
  Receive Date: 20191105
  Receipt Date: 20191105
  Transmission Date: 20200122
  Serious: Yes (Other)
  Sender: FDA-Public Use
  Company Number: US-STRIDES ARCOLAB LIMITED-2019SP006761

PATIENT

DRUGS (4)
  1. PARACETAMOL [Suspect]
     Active Substance: ACETAMINOPHEN
     Indication: BACK PAIN
     Dosage: UNK
     Route: 065
  2. GABAPENTIN. [Suspect]
     Active Substance: GABAPENTIN
     Indication: BACK PAIN
     Dosage: UNK
     Route: 065
  3. OXYCODONE [Suspect]
     Active Substance: OXYCODONE
     Indication: BACK PAIN
     Dosage: UNK
     Route: 065
  4. TRAMADOL. [Suspect]
     Active Substance: TRAMADOL
     Indication: BACK PAIN
     Dosage: UNK
     Route: 065

REACTIONS (1)
  - Drug ineffective [Unknown]
